FAERS Safety Report 5571295-6 (Version None)
Quarter: 2007Q4

REPORT INFORMATION
  Report Type: 
  Country: None (occurrence: None)
  Receive Date: 20071221
  Receipt Date: 20070509
  Transmission Date: 20080405
  Serious: No
  Sender: FDA-Public Use
  Company Number: A0650615A

PATIENT
  Age: 8 Year
  Sex: Male

DRUGS (3)
  1. FLONASE [Suspect]
     Dosage: 2PUFF TWICE PER DAY
     Route: 045
  2. ALLEGRA [Concomitant]
  3. UNKNOWN MEDICATION [Concomitant]
     Indication: ANXIETY

REACTIONS (1)
  - DRUG INEFFECTIVE [None]
